FAERS Safety Report 5590665-3 (Version None)
Quarter: 2008Q1

REPORT INFORMATION
  Report Type: 
  Country: None (occurrence: None)
  Receive Date: 20080114
  Receipt Date: 20070307
  Transmission Date: 20080703
  Serious: Yes (Hospitalization)
  Sender: FDA-Public Use
  Company Number: US-MERCK-0703USA01044

PATIENT
  Age: 4 Year
  Sex: Male

DRUGS (8)
  1. SINGULAIR [Suspect]
     Indication: ECZEMA
     Route: 048
     Dates: start: 20010824, end: 20070304
  2. SINGULAIR [Suspect]
     Indication: ASTHMA
     Route: 048
     Dates: start: 20010824, end: 20070304
  3. ASMANEX TWISTHALER [Concomitant]
     Route: 065
     Dates: start: 20061101
  4. ZYRTEC [Concomitant]
     Route: 065
  5. NASONEX [Concomitant]
     Route: 065
  6. LEXAPRO [Concomitant]
     Route: 065
     Dates: start: 20061101
  7. ADVAIR DISKUS 100/50 [Concomitant]
     Indication: ASTHMA
     Route: 065
     Dates: start: 20040101, end: 20061101
  8. SINGULAIR [Suspect]
     Route: 048

REACTIONS (5)
  - ALLERGIC GRANULOMATOUS ANGIITIS [None]
  - ANXIETY [None]
  - GASTROOESOPHAGEAL REFLUX DISEASE [None]
  - LUNG NEOPLASM [None]
  - OVERDOSE [None]
